FAERS Safety Report 11109511 (Version 8)
Quarter: 2017Q1

REPORT INFORMATION
  Report Type: Spontaneous
  Country: US (occurrence: US)
  Receive Date: 20150513
  Receipt Date: 20170320
  Transmission Date: 20170428
  Serious: Yes (Other)
  Sender: FDA-Public Use
  Company Number: US-PFIZER INC-2015156767

PATIENT
  Age: 35 Year
  Sex: Female
  Weight: 57 kg

DRUGS (9)
  1. LYRICA [Suspect]
     Active Substance: PREGABALIN
     Indication: FIBROMYALGIA
     Dosage: 250 MG, DAILY (200MG AT NIGHT 50MG IN MORNING OR 50MG ONCE DURING THE DAY AND 200MG ONCE AT NIGHT)
     Route: 048
  2. LYRICA [Suspect]
     Active Substance: PREGABALIN
     Dosage: 100 MG, 1X/DAY (AT NIGHT)
     Dates: start: 20170113
  3. ADDERALL [Concomitant]
     Active Substance: AMPHETAMINE ASPARTATE\AMPHETAMINE SULFATE\DEXTROAMPHETAMINE SACCHARATE\DEXTROAMPHETAMINE SULFATE
     Indication: COGNITIVE DISORDER
     Dosage: 20 MG, DAILY
  4. ZANAFLEX [Concomitant]
     Active Substance: TIZANIDINE HYDROCHLORIDE
     Indication: MUSCLE SPASMS
     Dosage: 50 MG, AS NEEDED
     Dates: start: 2013
  5. LYRICA [Suspect]
     Active Substance: PREGABALIN
     Dosage: 50 MG, 1X/DAY (1 CAPSULE IN MORNING)
     Route: 048
  6. FETZIMA [Concomitant]
     Active Substance: LEVOMILNACIPRAN HYDROCHLORIDE
     Indication: DEPRESSION
     Dosage: 40 MG, DAILY
     Dates: start: 20141031
  7. TIZANIDINE. [Concomitant]
     Active Substance: TIZANIDINE
     Indication: FIBROMYALGIA
     Dosage: 4 MG, DAILY
  8. MEDROL [Concomitant]
     Active Substance: METHYLPREDNISOLONE
     Indication: FIBROMYALGIA
     Dosage: 30 MG, AS NEEDED (ONCE A DAY, OFF AND ON )
     Dates: start: 2003
  9. LYRICA [Suspect]
     Active Substance: PREGABALIN
     Dosage: 200 MG, DAILY [QD]
     Route: 048

REACTIONS (11)
  - Suicidal ideation [Unknown]
  - Gastrointestinal disorder [Unknown]
  - Cold sweat [Unknown]
  - Depression [Unknown]
  - Amnesia [Not Recovered/Not Resolved]
  - Withdrawal syndrome [Unknown]
  - Pruritus [Unknown]
  - Mental impairment [Unknown]
  - Weight increased [Unknown]
  - Hypoaesthesia [Recovered/Resolved with Sequelae]
  - Hyperhidrosis [Unknown]

NARRATIVE: CASE EVENT DATE: 2000
